FAERS Safety Report 6555672-2 (Version None)
Quarter: 2010Q1

REPORT INFORMATION
  Report Type: 
  Country: None (occurrence: None)
  Receive Date: 20100128
  Receipt Date: 20100118
  Transmission Date: 20100710
  Serious: Yes (Hospitalization, Other)
  Sender: FDA-Public Use
  Company Number: PHHY2009BR50745

PATIENT
  Age: 74 Year
  Sex: Female
  Weight: 62 kg

DRUGS (3)
  1. DIOVAN HCT [Suspect]
     Indication: BLOOD PRESSURE FLUCTUATION
     Dosage: 160/12.5MG
     Route: 048
     Dates: start: 20030101
  2. NEXIUM [Concomitant]
     Route: 065
  3. OMEPRAZOLE [Concomitant]
     Dosage: ONE TABLET DAILY
     Route: 065

REACTIONS (8)
  - ANGIOPLASTY [None]
  - BLOOD PRESSURE DECREASED [None]
  - CATHETER PLACEMENT [None]
  - CONFUSIONAL STATE [None]
  - CRYING [None]
  - FEELING ABNORMAL [None]
  - GRAFT COMPLICATION [None]
  - STENT PLACEMENT [None]
